FAERS Safety Report 21208923 (Version 1)
Quarter: 2022Q3

REPORT INFORMATION
  Report Type: Spontaneous
  Country: FR (occurrence: FR)
  Receive Date: 20220812
  Receipt Date: 20220812
  Transmission Date: 20221027
  Serious: Yes (Hospitalization, Other)
  Sender: FDA-Public Use
  Company Number: None

PATIENT
  Sex: Male

DRUGS (14)
  1. CITALOPRAM HYDROBROMIDE [Suspect]
     Active Substance: CITALOPRAM HYDROBROMIDE
     Indication: Confusional state
     Dosage: 40 MG, QD
     Dates: start: 200509
  2. CITALOPRAM HYDROBROMIDE [Suspect]
     Active Substance: CITALOPRAM HYDROBROMIDE
     Indication: Senile dementia
     Dosage: UNK
     Dates: start: 200509
  3. CITALOPRAM HYDROBROMIDE [Suspect]
     Active Substance: CITALOPRAM HYDROBROMIDE
     Dosage: 40 MG, QD
     Dates: start: 20050802, end: 200509
  4. ZOLPIDEM TARTRATE [Suspect]
     Active Substance: ZOLPIDEM TARTRATE
     Indication: Confusional state
     Dosage: UNK
     Dates: start: 200509
  5. ZOLPIDEM TARTRATE [Suspect]
     Active Substance: ZOLPIDEM TARTRATE
     Indication: Senile dementia
     Dosage: 10 MG, QD
     Dates: start: 20050802, end: 200509
  6. CLOZAPINE [Suspect]
     Active Substance: CLOZAPINE
     Indication: Confusional state
     Dosage: UNK
     Dates: start: 200509
  7. CLOZAPINE [Suspect]
     Active Substance: CLOZAPINE
     Indication: Senile dementia
     Dosage: 25 MG, QD
     Dates: start: 20050802, end: 200509
  8. VALIUM [Suspect]
     Active Substance: DIAZEPAM
     Indication: Senile dementia
     Dosage: 20 DF, QD
     Dates: start: 20050917, end: 20050928
  9. LORMETAZEPAM [Suspect]
     Active Substance: LORMETAZEPAM
     Indication: Senile dementia
     Dosage: 1 MG, QD
     Dates: start: 20050923, end: 20050928
  10. LORMETAZEPAM [Suspect]
     Active Substance: LORMETAZEPAM
     Indication: Confusional state
  11. CASODEX [Suspect]
     Active Substance: BICALUTAMIDE
     Indication: Product used for unknown indication
     Dosage: UNK
  12. VALIUM [Suspect]
     Active Substance: DIAZEPAM
     Indication: Confusional state
     Dosage: 20 DF, QD
     Dates: start: 20050917, end: 20050928
  13. XANAX [Concomitant]
     Active Substance: ALPRAZOLAM
     Indication: Confusional state
     Dosage: UNK
     Dates: start: 20050928
  14. XANAX [Concomitant]
     Active Substance: ALPRAZOLAM
     Indication: Senile dementia
     Dosage: UNK
     Dates: start: 20050928

REACTIONS (5)
  - Cognitive disorder [Unknown]
  - Meningitis aseptic [Recovered/Resolved with Sequelae]
  - Condition aggravated [Unknown]
  - Hallucination [Unknown]
  - Myoclonus [Unknown]

NARRATIVE: CASE EVENT DATE: 20050928
